FAERS Safety Report 16644759 (Version 1)
Quarter: 2019Q3

REPORT INFORMATION
  Report Type: Spontaneous
  Country: US (occurrence: US)
  Receive Date: 20190729
  Receipt Date: 20190729
  Transmission Date: 20191004
  Serious: No
  Sender: FDA-Public Use
  Company Number: US-BAUSCH-BL-2019-020021

PATIENT
  Age: 73 Year
  Sex: Male

DRUGS (3)
  1. BESIVANCE [Suspect]
     Active Substance: BESIFLOXACIN
     Indication: EYE INFECTION BACTERIAL
  2. BESIVANCE [Suspect]
     Active Substance: BESIFLOXACIN
     Indication: EYE ULCER
     Route: 047
     Dates: start: 20190701, end: 20190708
  3. BESIVANCE [Suspect]
     Active Substance: BESIFLOXACIN
     Indication: EYE INFECTION VIRAL

REACTIONS (6)
  - Therapy cessation [Unknown]
  - Ocular hyperaemia [Unknown]
  - Eye swelling [Recovering/Resolving]
  - Intraocular pressure increased [Unknown]
  - Eye pain [Unknown]
  - Swelling of eyelid [Recovering/Resolving]

NARRATIVE: CASE EVENT DATE: 20190703
